FAERS Safety Report 4795722-7 (Version None)
Quarter: 2005Q4

REPORT INFORMATION
  Report Type: 
  Country: None (occurrence: None)
  Receive Date: 20051012
  Receipt Date: 20050930
  Transmission Date: 20060501
  Serious: Yes (Other)
  Sender: FDA-Public Use
  Company Number: US-BRISTOL-MYERS SQUIBB COMPANY-13130406

PATIENT
  Age: 41 Year
  Sex: Male

DRUGS (3)
  1. DIDANOSINE [Suspect]
     Indication: HIV INFECTION
     Dates: start: 19990401, end: 20010401
  2. STAVUDINE [Suspect]
     Indication: HIV INFECTION
     Dates: start: 20000201
  3. NELFINAVIR [Suspect]
     Dates: start: 20000201

REACTIONS (1)
  - PANCREATITIS [None]
